FAERS Safety Report 11119443 (Version 1)
Quarter: 2015Q2

REPORT INFORMATION
  Report Type: Spontaneous
  Country: US (occurrence: US)
  Receive Date: 20150518
  Receipt Date: 20150518
  Transmission Date: 20150821
  Serious: No
  Sender: FDA-Public Use
  Company Number: US-TEVA-562016USA

PATIENT
  Sex: Male
  Weight: 113.5 kg

DRUGS (1)
  1. PROAIR HFA [Suspect]
     Active Substance: ALBUTEROL SULFATE
     Indication: DYSPNOEA
     Dosage: 8 DOSAGE FORMS DAILY;
     Dates: start: 20150417

REACTIONS (1)
  - Folliculitis [Not Recovered/Not Resolved]
